FAERS Safety Report 6123696-5 (Version None)
Quarter: 2009Q1

REPORT INFORMATION
  Report Type: 
  Country: None (occurrence: None)
  Receive Date: 20090317
  Receipt Date: 20090310
  Transmission Date: 20090719
  Serious: Yes (Hospitalization)
  Sender: FDA-Public Use
  Company Number: VISP-NO-0902S-0083

PATIENT
  Age: 66 Year
  Sex: Female

DRUGS (1)
  1. VISIPAQUE [Suspect]
     Indication: THERAPEUTIC EMBOLISATION
     Dosage: 150 ML, SINGLE DOSE, I.A.
     Route: 013
     Dates: start: 20090219, end: 20090219

REACTIONS (1)
  - LOSS OF CONSCIOUSNESS [None]
